FAERS Safety Report 7215252-2 (Version None)
Quarter: 2011Q1

REPORT INFORMATION
  Report Type: 
  Country: None (occurrence: None)
  Receive Date: 20110107
  Receipt Date: 20101230
  Transmission Date: 20110831
  Serious: Yes (Hospitalization)
  Sender: FDA-Public Use
  Company Number: PHHY2010FR89713

PATIENT
  Sex: Female

DRUGS (2)
  1. SEROPRAM [Concomitant]
     Dosage: 20 MG, QD
     Route: 048
  2. FEMARA [Suspect]
     Indication: BREAST CANCER
     Dosage: 2.5 MG DAILY
     Route: 048
     Dates: start: 20041101

REACTIONS (6)
  - CEREBRAL VENOUS THROMBOSIS [None]
  - MENTAL STATUS CHANGES [None]
  - FOOD AVERSION [None]
  - OSTEOLYSIS [None]
  - AREFLEXIA [None]
  - SENSORY LOSS [None]
